FAERS Safety Report 7255651-6 (Version None)
Quarter: 2011Q1

REPORT INFORMATION
  Report Type: 
  Country: None (occurrence: None)
  Receive Date: 20110129
  Receipt Date: 20100825
  Transmission Date: 20110831
  Serious: No
  Sender: FDA-Public Use
  Company Number: US-ABBOTT-10P-163-0666882-00

PATIENT
  Sex: Female
  Weight: 74.91 kg

DRUGS (3)
  1. HUMIRA [Suspect]
     Indication: CROHN'S DISEASE
     Route: 058
     Dates: start: 20071001, end: 20100825
  2. HUMIRA [Suspect]
     Dates: start: 20100825
  3. ASCOL [Concomitant]
     Indication: PRODUCT USED FOR UNKNOWN INDICATION

REACTIONS (8)
  - CROHN'S DISEASE [None]
  - MUSCULAR WEAKNESS [None]
  - DRUG INEFFECTIVE [None]
  - PAIN IN EXTREMITY [None]
  - RASH PAPULAR [None]
  - DIARRHOEA [None]
  - ARTHRALGIA [None]
  - HAEMATOCHEZIA [None]
